FAERS Safety Report 23904716 (Version 3)
Quarter: 2024Q3

REPORT INFORMATION
  Report Type: Report from Study
  Country: IN (occurrence: IN)
  Receive Date: 20240527
  Receipt Date: 20240716
  Transmission Date: 20241017
  Serious: Yes (Other)
  Sender: ROCHE
  Company Number: IN-ROCHE-3566944

PATIENT
  Age: 45 Year
  Sex: Female

DRUGS (1)
  1. KADCYLA [Suspect]
     Active Substance: ADO-TRASTUZUMAB EMTANSINE
     Indication: Breast cancer metastatic
     Route: 042
     Dates: start: 20221004

REACTIONS (3)
  - Bone disorder [Unknown]
  - Thrombocytopenia [Unknown]
  - Platelet count decreased [Unknown]
